FAERS Safety Report 14776368 (Version 2)
Quarter: 2018Q2

REPORT INFORMATION
  Report Type: Report from Study
  Country: None (occurrence: ES)
  Receive Date: 20180418
  Receipt Date: 20180629
  Transmission Date: 20180711
  Serious: Yes (Hospitalization)
  Sender: FDA-Public Use
  Company Number: ES-ABBVIE-18P-144-2319748-00

PATIENT
  Age: 70 Year
  Sex: Male

DRUGS (9)
  1. DUODOPA [Suspect]
     Active Substance: CARBIDOPA\LEVODOPA
     Indication: PARKINSON^S DISEASE
     Dosage: MD 11ML, CD 4.2 ML/H, ED 4 ML/DOSE, NUMBER OF EXTRA DOSES PER DAY 3, 16 HR TREATMENT
     Route: 050
     Dates: start: 20170920, end: 20171016
  2. OMEPRAZOL [Concomitant]
     Active Substance: OMEPRAZOLE
     Indication: GASTROOESOPHAGEAL REFLUX DISEASE
     Route: 048
     Dates: start: 20050101
  3. TAMSULOSINA, DUTASTERIDA (DUODART) [Concomitant]
     Indication: BENIGN PROSTATIC HYPERPLASIA
     Dosage: 0.5/0.4 MG
     Route: 048
     Dates: start: 20150101
  4. SINEMET RETARD (LEVODOPA/CARBIDOPA) PROLONG [Concomitant]
     Indication: PARKINSON^S DISEASE
     Route: 048
     Dates: start: 20170922
  5. MIRABEGRON [Concomitant]
     Active Substance: MIRABEGRON
     Indication: BENIGN PROSTATIC HYPERPLASIA
     Route: 048
     Dates: start: 20160601
  6. METAMIZOL [Concomitant]
     Active Substance: METAMIZOLE SODIUM
     Indication: OSTEOPOROSIS
     Route: 048
     Dates: start: 20160101
  7. GABAPENTINA [Concomitant]
     Active Substance: GABAPENTIN
     Indication: SCIATICA
     Route: 048
     Dates: start: 20161222
  8. DUODOPA [Suspect]
     Active Substance: CARBIDOPA\LEVODOPA
     Dosage: MD 11ML, CD 4.4 ML/H, ED 4 ML/DOSE, NUMBER OF EXTRA DOSES PER DAY 4, 16 HR TREATMENT
     Route: 050
     Dates: start: 20171017
  9. ENANTYUM [Concomitant]
     Active Substance: DEXKETOPROFEN TROMETAMOL
     Indication: SCIATICA
     Route: 048
     Dates: start: 20160101

REACTIONS (1)
  - Atrial fibrillation [Recovered/Resolved]

NARRATIVE: CASE EVENT DATE: 20180402
